FAERS Safety Report 14287948 (Version 1)
Quarter: 2017Q4

REPORT INFORMATION
  Report Type: Spontaneous
  Country: US (occurrence: US)
  Receive Date: 20171215
  Receipt Date: 20171215
  Transmission Date: 20180321
  Serious: Yes (Life-Threatening, Hospitalization, Other)
  Sender: FDA-Public Use
  Company Number: US-GLENMARK PHARMACEUTICALS-2017GMK030042

PATIENT
  Age: 58 Year
  Sex: Female

DRUGS (1)
  1. LIDOCAINE. [Suspect]
     Active Substance: LIDOCAINE
     Indication: ENDODONTIC PROCEDURE
     Dosage: UNK
     Route: 065

REACTIONS (3)
  - Blood pressure increased [Recovering/Resolving]
  - Carotid artery dissection [Recovering/Resolving]
  - Heart rate decreased [Unknown]
